FAERS Safety Report 14333420 (Version 3)
Quarter: 2018Q2

REPORT INFORMATION
  Report Type: Spontaneous
  Country: GB (occurrence: GB)
  Receive Date: 20171228
  Receipt Date: 20180423
  Transmission Date: 20180711
  Serious: Yes (Other)
  Sender: FDA-Public Use
  Company Number: GB-PFIZER INC-2017543874

PATIENT
  Age: 62 Year
  Sex: Male
  Weight: 64 kg

DRUGS (8)
  1. AMLODIPINE BESILATE [Suspect]
     Active Substance: AMLODIPINE BESYLATE
     Dosage: 15 MG, UNK
     Route: 048
     Dates: start: 20171120, end: 20171128
  2. EUCERIN UREA [Concomitant]
     Indication: DRY SKIN
     Dosage: 2 DF, 1X/DAY
     Dates: start: 20171115
  3. BRALTUS [Concomitant]
     Dosage: 1 DF, 1X/DAY
     Route: 055
     Dates: start: 20170921
  4. DIPROSALIC [Concomitant]
     Active Substance: BETAMETHASONE DIPROPIONATE
     Dosage: UNK, AS NEEDED TWICE DAILY
     Dates: start: 20171115
  5. BALNEUM [Concomitant]
     Dosage: UNK (USED IN PLACE OF SOAP)
     Dates: start: 20171115
  6. CLOPIDOGREL [Concomitant]
     Active Substance: CLOPIDOGREL BISULFATE
     Dosage: 75 MG, 1X/DAY
     Dates: start: 20170908, end: 20171120
  7. BALNEUM INTEN.PLUS [Concomitant]
     Dosage: UNK (TO BE USED IN PLACE OF SOAP)
     Dates: start: 20171115, end: 20171115
  8. ENSTILAR [Concomitant]
     Active Substance: BETAMETHASONE DIPROPIONATE\CALCIPOTRIENE HYDRATE
     Indication: PSORIASIS
     Dosage: 1 DF, 1X/DAY APPLY AT NIGHT
     Route: 003
     Dates: start: 20171115

REACTIONS (7)
  - Dyspnoea [Recovering/Resolving]
  - Malaise [Unknown]
  - Crepitations [Unknown]
  - Swollen tongue [Recovering/Resolving]
  - Dysphonia [Recovering/Resolving]
  - Lip swelling [Recovering/Resolving]
  - Dysarthria [Recovering/Resolving]

NARRATIVE: CASE EVENT DATE: 20171124
